FAERS Safety Report 8031308-9 (Version None)
Quarter: 2012Q1

REPORT INFORMATION
  Report Type: 
  Country: None (occurrence: None)
  Receive Date: 20120109
  Receipt Date: 20120103
  Transmission Date: 20120608
  Serious: Yes (Life-Threatening, Hospitalization, Other)
  Sender: FDA-Public Use
  Company Number: US-GLAXOSMITHKLINE-A0951594A

PATIENT
  Age: 44 Year
  Sex: Female
  Weight: 120.1 kg

DRUGS (14)
  1. METRONIDAZOLE [Concomitant]
     Indication: CLOSTRIDIAL INFECTION
     Dosage: 500MG SEE DOSAGE TEXT
     Route: 048
     Dates: start: 20111017
  2. ALBUMIN (HUMAN) [Concomitant]
     Dosage: 25G SEE DOSAGE TEXT
     Dates: start: 20111011, end: 20111012
  3. CLINDAMYCIN [Concomitant]
     Indication: SEPSIS
     Dosage: 900MG SEE DOSAGE TEXT
     Route: 042
     Dates: start: 20111011, end: 20111017
  4. FLUCONAZOLE [Concomitant]
     Indication: SEPSIS
     Dosage: 100MG PER DAY
     Route: 042
     Dates: start: 20111014, end: 20111024
  5. COUMADIN [Concomitant]
     Indication: DEEP VEIN THROMBOSIS
     Dosage: 5MG PER DAY
     Route: 048
     Dates: start: 20111022
  6. ARIXTRA [Suspect]
     Indication: THROMBOSIS PROPHYLAXIS
     Dosage: 2.5MG PER DAY
     Route: 058
     Dates: start: 20111014, end: 20111025
  7. METOCLOPRAMIDE [Concomitant]
     Indication: NAUSEA
     Dosage: 5MG SEE DOSAGE TEXT
     Route: 042
     Dates: start: 20111013, end: 20111018
  8. ZOSYN [Concomitant]
     Indication: SEPSIS
     Dosage: 3.375MG SEE DOSAGE TEXT
     Route: 042
     Dates: start: 20111016, end: 20111024
  9. BUMETANIDE [Concomitant]
     Indication: OEDEMA
     Dosage: 1MG TWICE PER DAY
     Route: 042
     Dates: start: 20111013, end: 20111020
  10. FENTANYL [Concomitant]
     Indication: PAIN
     Route: 042
  11. FAMOTIDINE [Concomitant]
     Indication: PROPHYLAXIS
     Route: 042
     Dates: start: 20111010, end: 20111023
  12. PENICILLIN G POTASSIUM [Concomitant]
     Indication: SEPSIS
     Dosage: 3MU SEE DOSAGE TEXT
     Route: 042
     Dates: start: 20111011, end: 20111014
  13. COMBIVENT [Concomitant]
     Indication: CHRONIC OBSTRUCTIVE PULMONARY DISEASE
     Dosage: 8PUFF FOUR TIMES PER DAY
     Route: 055
     Dates: start: 20111010, end: 20111020
  14. NOVOLOG [Concomitant]
     Indication: HYPERGLYCAEMIA
     Route: 058

REACTIONS (2)
  - DEEP VEIN THROMBOSIS [None]
  - DRUG INEFFECTIVE [None]
